FAERS Safety Report 5497222-8 (Version None)
Quarter: 2007Q4

REPORT INFORMATION
  Report Type: 
  Country: None (occurrence: None)
  Receive Date: 20071025
  Receipt Date: 20060912
  Transmission Date: 20080405
  Serious: No
  Sender: FDA-Public Use
  Company Number: A0619916A

PATIENT
  Age: 63 Year
  Sex: Male

DRUGS (3)
  1. ADVAIR DISKUS 100/50 [Suspect]
     Indication: ASBESTOSIS
     Dosage: 1PUFF TWICE PER DAY
     Route: 055
     Dates: start: 20030101
  2. UNKNOWN MEDICATION [Concomitant]
  3. CALCIUM [Concomitant]

REACTIONS (1)
  - THERAPEUTIC RESPONSE UNEXPECTED [None]
